FAERS Safety Report 10051587 (Version 1)
Quarter: 2014Q2

REPORT INFORMATION
  Report Type: Spontaneous
  Country: GB (occurrence: GB)
  Receive Date: 20140401
  Receipt Date: 20140401
  Transmission Date: 20141212
  Serious: Yes (Other)
  Sender: FDA-Public Use
  Company Number: GB-BRISTOL-MYERS SQUIBB COMPANY-20552717

PATIENT
  Age: 51 Year
  Sex: Male

DRUGS (9)
  1. FORXIGA [Suspect]
     Indication: DIABETES MELLITUS
     Dosage: IN THE MORNING
     Route: 048
     Dates: start: 20140122
  2. NOVORAPID [Concomitant]
  3. LANTUS [Concomitant]
     Dosage: LANTUS SOLUTION FOR INJECTION 100 IU/ML
  4. GLICLAZIDE [Concomitant]
  5. ALLOPURINOL [Concomitant]
  6. FUROSEMIDE [Concomitant]
  7. RAMIPRIL [Concomitant]
  8. LERCANIDIPINE [Concomitant]
  9. LEVOTHYROXINE [Concomitant]

REACTIONS (1)
  - Wheezing [Not Recovered/Not Resolved]
